FAERS Safety Report 23999848 (Version 1)
Quarter: 2024Q2

REPORT INFORMATION
  Report Type: Spontaneous
  Country: US (occurrence: None)
  Receive Date: 20240620
  Receipt Date: 20240620
  Transmission Date: 20240715
  Serious: Yes (Hospitalization)
  Sender: FDA-Public Use
  Company Number: None

PATIENT
  Age: 84 Year
  Sex: Female
  Weight: 160.3 kg

DRUGS (9)
  1. SPRYCEL [Suspect]
     Active Substance: DASATINIB
     Indication: Chronic myeloid leukaemia
     Dosage: 100 MG DAILY ORAL?
     Route: 048
     Dates: start: 20180626, end: 20240614
  2. ALBUTEROL [Concomitant]
     Active Substance: ALBUTEROL
  3. Ferrous sulfate 325 mg [Concomitant]
  4. ADVAIR HFA [Concomitant]
     Active Substance: FLUTICASONE PROPIONATE\SALMETEROL XINAFOATE
  5. FLUTICASONE [Concomitant]
     Active Substance: FLUTICASONE
  6. ipratropium 17 mcg/inhaler [Concomitant]
  7. LEVOTHYROXINE [Concomitant]
     Active Substance: LEVOTHYROXINE\LEVOTHYROXINE SODIUM
  8. MONTELUKAST SODIUM [Concomitant]
     Active Substance: MONTELUKAST SODIUM
  9. potassium 10 meq [Concomitant]

REACTIONS (1)
  - Pleural effusion [None]

NARRATIVE: CASE EVENT DATE: 20240614
